FAERS Safety Report 15529144 (Version 1)
Quarter: 2018Q4

REPORT INFORMATION
  Report Type: Report from Study
  Country: US (occurrence: US)
  Receive Date: 20181018
  Receipt Date: 20181018
  Transmission Date: 20190205
  Serious: No
  Sender: FDA-Public Use
  Company Number: US-AMGEN-USASL2018128075

PATIENT
  Age: 68 Year
  Sex: Male

DRUGS (1)
  1. REPATHA [Suspect]
     Active Substance: EVOLOCUMAB
     Indication: TYPE IIA HYPERLIPIDAEMIA
     Dosage: 140 MG, Q2WK
     Route: 065
     Dates: start: 20171213

REACTIONS (6)
  - Arthralgia [Unknown]
  - Joint lock [Unknown]
  - Influenza like illness [Unknown]
  - Dizziness [Unknown]
  - Musculoskeletal pain [Unknown]
  - Myalgia [Unknown]

NARRATIVE: CASE EVENT DATE: 20171216
